FAERS Safety Report 4612281-X (Version None)
Quarter: 2005Q1

REPORT INFORMATION
  Report Type: 
  Country: None (occurrence: None)
  Receive Date: 20050316
  Receipt Date: 20050307
  Transmission Date: 20050727
  Serious: Yes (Other)
  Sender: FDA-Public Use
  Company Number: US-2004-026928

PATIENT
  Age: 49 Year
  Sex: Male
  Weight: 90.7 kg

DRUGS (10)
  1. BETASERON [Suspect]
     Indication: RELAPSING-REMITTING MULTIPLE SCLEROSIS
     Dosage: 8 MIU, EVERY 2D, SUBCUTANEOUS
     Route: 058
     Dates: start: 20040310
  2. CORTICOSTEROIDS FOR SYSTEMIC USE () [Suspect]
     Indication: ABASIA
     Dosage: INTRAVENOUS
     Route: 042
     Dates: start: 20040522, end: 20040524
  3. CORTICOSTEROIDS FOR SYSTEMIC USE () [Suspect]
     Indication: ABASIA
     Dosage: INTRAVENOUS
     Route: 042
     Dates: start: 20040619, end: 20040620
  4. DITROPAN XL [Concomitant]
  5. EFFEXOR XR [Concomitant]
  6. BACLOFEN [Concomitant]
  7. RANITIDINE [Concomitant]
  8. ASPIRIN [Concomitant]
  9. BILBERRY (VACCINIUM MYRTILLUS) [Concomitant]
  10. MULTIVITAMINS (RETINOL, PANTHENOL) [Concomitant]

REACTIONS (6)
  - ABASIA [None]
  - ASTHENIA [None]
  - CONDITION AGGRAVATED [None]
  - DYSSTASIA [None]
  - FEELING HOT [None]
  - MULTIPLE SCLEROSIS [None]
